FAERS Safety Report 9099049 (Version 2)
Quarter: 2013Q2

REPORT INFORMATION
  Report Type: Spontaneous
  Country: JP (occurrence: JP)
  Receive Date: 20130214
  Receipt Date: 20130408
  Transmission Date: 20140414
  Serious: Yes (Hospitalization, Other)
  Sender: FDA-Public Use
  Company Number: JP-B.I. PHARMACEUTICALS,INC./RIDGEFIELD-2013-BI-02877GD

PATIENT
  Age: 58 Year
  Sex: Female

DRUGS (1)
  1. SIFROL [Suspect]
     Indication: PARKINSON^S DISEASE
     Dosage: 2 MG
     Route: 065

REACTIONS (3)
  - Mania [Unknown]
  - Impulse-control disorder [Unknown]
  - Shoplifting [Unknown]
